FAERS Safety Report 12939078 (Version 1)
Quarter: 2016Q4

REPORT INFORMATION
  Report Type: Report from Study
  Country: DE (occurrence: DE)
  Receive Date: 20161115
  Receipt Date: 20161115
  Transmission Date: 20170207
  Serious: Yes (Hospitalization, Other)
  Sender: FDA-Public Use
  Company Number: DE-ASTELLAS-2016US044978

PATIENT
  Age: 15 Year
  Sex: Male

DRUGS (2)
  1. TACROLIMUS. [Suspect]
     Active Substance: TACROLIMUS
     Indication: DERMATITIS ATOPIC
     Dosage: 0.03 %, UNKNOWN FREQ.
     Route: 061
     Dates: start: 20100729, end: 20100729
  2. UREA. [Concomitant]
     Active Substance: UREA
     Indication: ICHTHYOSIS
     Route: 003
     Dates: start: 20161024

REACTIONS (2)
  - Exostosis [Unknown]
  - Ichthyosis [Not Recovered/Not Resolved]

NARRATIVE: CASE EVENT DATE: 201608
